FAERS Safety Report 24527541 (Version 2)
Quarter: 2024Q4

REPORT INFORMATION
  Report Type: Report from Study
  Country: US (occurrence: US)
  Receive Date: 20241021
  Receipt Date: 20241118
  Transmission Date: 20250114
  Serious: Yes (Other)
  Sender: ALEXION PHARMACEUTICALS
  Company Number: US-AstraZeneca-2024A203261

PATIENT
  Age: 66 Year
  Weight: 52.1 kg

DRUGS (8)
  1. FULVESTRANT [Suspect]
     Active Substance: FULVESTRANT
     Dosage: UNK
  2. FULVESTRANT [Suspect]
     Active Substance: FULVESTRANT
     Dosage: UNK
  3. FULVESTRANT [Suspect]
     Active Substance: FULVESTRANT
     Dosage: UNK
  4. FULVESTRANT [Suspect]
     Active Substance: FULVESTRANT
     Dosage: UNK
  5. CAPIVASERTIB [Suspect]
     Active Substance: CAPIVASERTIB
     Indication: Breast cancer female
     Dosage: 400 MILLIGRAM, BID
  6. CAPIVASERTIB [Suspect]
     Active Substance: CAPIVASERTIB
     Dosage: 400 MILLIGRAM, BID
  7. CAPIVASERTIB [Suspect]
     Active Substance: CAPIVASERTIB
     Dosage: 400 MILLIGRAM, BID
  8. CAPIVASERTIB [Suspect]
     Active Substance: CAPIVASERTIB
     Dosage: 400 MILLIGRAM, BID

REACTIONS (48)
  - Cytopenia [Unknown]
  - Neutropenia [Unknown]
  - Malignant neoplasm progression [Unknown]
  - Ascites [Unknown]
  - Carbohydrate antigen 15-3 increased [Unknown]
  - Carbohydrate antigen 27.29 increased [Unknown]
  - Acquired gene mutation [Unknown]
  - Tumour marker increased [Unknown]
  - Metastases to liver [Unknown]
  - Abdominal pain [Unknown]
  - Rash erythematous [Recovering/Resolving]
  - Circumoral swelling [Recovering/Resolving]
  - Stomatitis [Recovering/Resolving]
  - Constipation [Unknown]
  - Hiatus hernia [Unknown]
  - Fatigue [Unknown]
  - Gastrooesophageal reflux disease [Unknown]
  - Gastritis [Unknown]
  - Abdominal discomfort [Unknown]
  - Musculoskeletal stiffness [Unknown]
  - Muscle spasms [Unknown]
  - Musculoskeletal pain [Unknown]
  - Mouth ulceration [Unknown]
  - Rash pruritic [Unknown]
  - Vulvovaginal discomfort [Unknown]
  - Hypotension [Unknown]
  - Neck pain [Unknown]
  - Muscle spasms [Unknown]
  - Ulcer [Unknown]
  - Blood glucose decreased [Unknown]
  - Asthenia [Unknown]
  - Mucosal inflammation [Unknown]
  - Dysphagia [Unknown]
  - Oropharyngeal pain [Unknown]
  - Pain [Unknown]
  - Lip swelling [Unknown]
  - Swollen tongue [Unknown]
  - Glossitis [Unknown]
  - Cheilitis [Unknown]
  - Inability to afford medication [Unknown]
  - Drug tolerance decreased [Unknown]
  - Diarrhoea [Unknown]
  - Hypotension [Unknown]
  - Blood sodium decreased [Unknown]
  - Decreased appetite [Unknown]
  - Weight decreased [Unknown]
  - Blood glucose increased [Unknown]
  - Fatigue [Unknown]
